FAERS Safety Report 7429618-9 (Version None)
Quarter: 2011Q2

REPORT INFORMATION
  Report Type: 
  Country: None (occurrence: None)
  Receive Date: 20110421
  Receipt Date: 20110413
  Transmission Date: 20111010
  Serious: Yes (Other)
  Sender: FDA-Public Use
  Company Number: B0713812A

PATIENT
  Age: 23 Year
  Sex: Male

DRUGS (4)
  1. VOLTAREN [Concomitant]
     Route: 065
  2. ZOVIRAX [Suspect]
     Indication: HERPES ZOSTER
     Route: 065
  3. PREDNISOLONE [Concomitant]
     Dosage: 15MG PER DAY
     Route: 048
  4. COCARL [Concomitant]
     Route: 048

REACTIONS (9)
  - ERYTHEMA MULTIFORME [None]
  - PYREXIA [None]
  - PRURITUS [None]
  - C-REACTIVE PROTEIN INCREASED [None]
  - STREPTOCOCCUS TEST POSITIVE [None]
  - EOSINOPHIL COUNT INCREASED [None]
  - BLOOD LACTATE DEHYDROGENASE INCREASED [None]
  - ERYTHEMA [None]
  - SWELLING FACE [None]
